FAERS Safety Report 4433392-8 (Version None)
Quarter: 2004Q3

REPORT INFORMATION
  Report Type: 
  Country: None (occurrence: None)
  Receive Date: 20040824
  Receipt Date: 20040818
  Transmission Date: 20050211
  Serious: Yes (Hospitalization)
  Sender: FDA-Public Use
  Company Number: 200412420GDS

PATIENT
  Age: 68 Year
  Sex: Male

DRUGS (1)
  1. ASPIRIN [Suspect]
     Indication: HEADACHE
     Dosage: 500 MG, TOTAL DAILY,ORAL
     Route: 048
     Dates: start: 20040301, end: 20040519

REACTIONS (9)
  - CEREBELLAR HAEMATOMA [None]
  - CEREBELLAR HAEMORRHAGE [None]
  - CEREBELLAR SYNDROME [None]
  - DISTURBANCE IN ATTENTION [None]
  - DYSPHAGIA [None]
  - EXTRAOCULAR MUSCLE PARESIS [None]
  - PNEUMONIA ASPIRATION [None]
  - POST PROCEDURAL COMPLICATION [None]
  - VASCULAR RUPTURE [None]
